FAERS Safety Report 5388537-2 (Version None)
Quarter: 2007Q3

REPORT INFORMATION
  Report Type: 
  Country: None (occurrence: None)
  Receive Date: 20070716
  Receipt Date: 20070705
  Transmission Date: 20080115
  Serious: Yes (Life-Threatening, Hospitalization)
  Sender: FDA-Public Use
  Company Number: JP-PFIZER INC-2007042868

PATIENT
  Sex: Male

DRUGS (8)
  1. ALDACTONE [Suspect]
     Indication: OEDEMA
     Dosage: DAILY DOSE:50MG-FREQ:FREQUENCY: BID
     Dates: start: 20070508, end: 20070521
  2. SOLDACTONE [Suspect]
     Indication: OEDEMA
     Dosage: DAILY DOSE:200MG
     Route: 042
     Dates: start: 20070425, end: 20070507
  3. SOLDACTONE [Suspect]
     Indication: ASCITES
  4. LASIX [Concomitant]
     Route: 048
     Dates: start: 20070503, end: 20070515
  5. PARIET [Concomitant]
     Route: 048
     Dates: start: 20070503, end: 20070515
  6. MAGNESIUM OXIDE [Concomitant]
     Route: 048
  7. LIVACT [Concomitant]
     Route: 048
     Dates: start: 20070427, end: 20070521
  8. LACTULOSE [Concomitant]
     Route: 048

REACTIONS (1)
  - TOXIC EPIDERMAL NECROLYSIS [None]
